FAERS Safety Report 11788543 (Version 1)
Quarter: 2015Q4

REPORT INFORMATION
  Report Type: Report from Study
  Country: ES (occurrence: ES)
  Receive Date: 20151201
  Receipt Date: 20151201
  Transmission Date: 20160305
  Serious: Yes (Hospitalization)
  Sender: FDA-Public Use
  Company Number: ES-ROCHE-1666492

PATIENT
  Age: 30 Year
  Sex: Male

DRUGS (4)
  1. DEPAKINE [Suspect]
     Active Substance: VALPROATE SODIUM
     Indication: EPILEPSY
     Route: 048
     Dates: start: 2009
  2. CIDINE (SPAIN) [Suspect]
     Active Substance: CINITAPRIDE TARTRATE
     Indication: EPILEPSY
     Route: 048
     Dates: start: 2009
  3. CLONAZEPAM. [Suspect]
     Active Substance: CLONAZEPAM
     Indication: EPILEPSY
     Route: 048
     Dates: start: 2009
  4. KEPPRA [Suspect]
     Active Substance: LEVETIRACETAM
     Indication: EPILEPSY
     Route: 048
     Dates: start: 2009

REACTIONS (2)
  - Pancreatitis acute [Recovered/Resolved]
  - Bile duct stone [None]

NARRATIVE: CASE EVENT DATE: 20150409
